FAERS Safety Report 12887524 (Version 3)
Quarter: 2017Q1

REPORT INFORMATION
  Report Type: Report from Study
  Country: FR (occurrence: FR)
  Receive Date: 20161026
  Receipt Date: 20170113
  Transmission Date: 20170428
  Serious: Yes (Hospitalization)
  Sender: FDA-Public Use
  Company Number: FR-BAXALTA-2016BLT007762

PATIENT
  Age: 2 Year
  Sex: Female
  Weight: 11 kg

DRUGS (25)
  1. VINCRISTINE [Suspect]
     Active Substance: VINCRISTINE
     Indication: ACUTE LYMPHOCYTIC LEUKAEMIA
     Dosage: 0.87 MG
     Route: 042
     Dates: start: 20160926, end: 20161017
  2. CEFTAZIDIME. [Concomitant]
     Active Substance: CEFTAZIDIME
     Indication: ANTIBIOTIC THERAPY
  3. ANTITHROMBIN III [Concomitant]
     Active Substance: ANTITHROMBIN III HUMAN
     Indication: ANTITHROMBIN III DECREASED
  4. ONCASPAR [Suspect]
     Active Substance: PEGASPARGASE
     Indication: ACUTE LYMPHOCYTIC LEUKAEMIA
     Dosage: 727.5 IU
     Route: 042
     Dates: start: 20160930, end: 20160930
  5. DAUNORUBICIN [Suspect]
     Active Substance: DAUNORUBICIN
     Indication: ACUTE LYMPHOCYTIC LEUKAEMIA
     Dosage: 17 MG
     Route: 042
     Dates: start: 20160926, end: 20161010
  6. METHYLPREDNISOLONE. [Suspect]
     Active Substance: METHYLPREDNISOLONE
     Indication: ACUTE LYMPHOCYTIC LEUKAEMIA
     Dosage: 40 MG
     Route: 042
     Dates: start: 20160919, end: 20161016
  7. LENOGRASTIM [Concomitant]
     Active Substance: LENOGRASTIM
     Indication: APLASIA
  8. POTASSIUM CHLORIDE. [Concomitant]
     Active Substance: POTASSIUM CHLORIDE
     Indication: HYPOKALAEMIA
  9. MACROGOL 4000 [Concomitant]
     Active Substance: POLYETHYLENE GLYCOL 4000
     Indication: PRODUCT USED FOR UNKNOWN INDICATION
  10. PANTOPRAZOLE [Concomitant]
     Active Substance: PANTOPRAZOLE SODIUM
     Indication: PROPHYLAXIS AGAINST GASTROINTESTINAL ULCER
  11. PLATELETS [Concomitant]
     Active Substance: HUMAN PLATELET, ALLOGENIC
     Indication: THROMBOCYTOPENIA
  12. CYTARABINE. [Suspect]
     Active Substance: CYTARABINE
     Indication: ACUTE LYMPHOCYTIC LEUKAEMIA
     Dosage: 25 MG
     Route: 037
     Dates: start: 20160927, end: 20161013
  13. FUROSEMIDE. [Concomitant]
     Active Substance: FUROSEMIDE
     Indication: WEIGHT INCREASED
  14. CARNITINE, CAROTENOIDS NOS, CHOLINE, FISH OIL, HERBAL OIL NOS, MALTODE [Concomitant]
     Indication: ENTERAL NUTRITION
  15. NALBUPHINE HYDROCHLORIDE. [Concomitant]
     Active Substance: NALBUPHINE HYDROCHLORIDE
     Indication: MUCOSAL INFLAMMATION
     Dosage: UNK
     Route: 042
  16. MORPHINE [Concomitant]
     Active Substance: MORPHINE
     Indication: MUCOSAL INFLAMMATION
     Dosage: UNK
     Route: 042
     Dates: start: 20161016
  17. SULFAMETHOXAZOLE, TRIMETHOPRIM [Concomitant]
     Active Substance: SULFAMETHOXAZOLE\TRIMETHOPRIM
     Indication: ANTIBIOTIC THERAPY
  18. AMLODIPINE BESILATE [Concomitant]
     Active Substance: AMLODIPINE BESYLATE
     Indication: HYPERTENSION
  19. ONCASPAR [Suspect]
     Active Substance: PEGASPARGASE
     Dosage: 727.5 IU
     Route: 042
     Dates: start: 20161014, end: 20161014
  20. METHOTREXATE. [Suspect]
     Active Substance: METHOTREXATE
     Indication: ACUTE LYMPHOCYTIC LEUKAEMIA
     Dosage: 10 MG
     Route: 037
     Dates: start: 20160919, end: 20161013
  21. HYDROCORTISONE. [Suspect]
     Active Substance: HYDROCORTISONE
     Indication: ACUTE LYMPHOCYTIC LEUKAEMIA
     Dosage: 12.6 MG
     Route: 037
     Dates: start: 20160927, end: 20161012
  22. MIDAZOLAM [Concomitant]
     Active Substance: MIDAZOLAM HYDROCHLORIDE
     Indication: SEDATIVE THERAPY
  23. CLONIDINE. [Concomitant]
     Active Substance: CLONIDINE
     Indication: SEDATIVE THERAPY
  24. NALBUPHINE HYDROCHLORIDE. [Concomitant]
     Active Substance: NALBUPHINE HYDROCHLORIDE
     Indication: PAIN
  25. MORPHINE [Concomitant]
     Active Substance: MORPHINE
     Indication: PAIN
     Dosage: CONTINUOUS PCA

REACTIONS (2)
  - Candida sepsis [Recovered/Resolved with Sequelae]
  - Febrile neutropenia [Not Recovered/Not Resolved]

NARRATIVE: CASE EVENT DATE: 20161016
